FAERS Safety Report 8026370-3 (Version None)
Quarter: 2012Q1

REPORT INFORMATION
  Report Type: 
  Country: None (occurrence: None)
  Receive Date: 20120105
  Receipt Date: 20111230
  Transmission Date: 20120608
  Serious: Yes (Other)
  Sender: FDA-Public Use
  Company Number: JP-ABBOTT-11P-087-0887832-00

PATIENT
  Age: 7 Year
  Sex: Female

DRUGS (1)
  1. CEFDINIR [Suspect]
     Indication: PRODUCT USED FOR UNKNOWN INDICATION
     Route: 048

REACTIONS (3)
  - DISORIENTATION [None]
  - NOCTURIA [None]
  - ABNORMAL BEHAVIOUR [None]
